FAERS Safety Report 6977568-4 (Version None)
Quarter: 2010Q3

REPORT INFORMATION
  Report Type: 
  Country: None (occurrence: None)
  Receive Date: 20100912
  Receipt Date: 20100831
  Transmission Date: 20110219
  Serious: Yes (Other)
  Sender: FDA-Public Use
  Company Number: US-JNJFOC-20100607308

PATIENT
  Sex: Female
  Weight: 81.65 kg

DRUGS (7)
  1. REMICADE [Suspect]
     Indication: CROHN'S DISEASE
     Route: 042
  2. REMICADE [Suspect]
     Route: 042
  3. ASACOL [Concomitant]
     Indication: CROHN'S DISEASE
     Route: 048
  4. XIFAXAN [Concomitant]
     Indication: CROHN'S DISEASE
     Route: 048
  5. ZOLOFT [Concomitant]
     Indication: DEPRESSION
     Route: 048
  6. FLORASTOR [Concomitant]
     Route: 048
  7. PRENATAL VITAMINS [Concomitant]
     Route: 065

REACTIONS (1)
  - BREAST CANCER [None]
